FAERS Safety Report 15688787 (Version 9)
Quarter: 2019Q4

REPORT INFORMATION
  Report Type: Report from Study
  Country: NL (occurrence: NL)
  Receive Date: 20181205
  Receipt Date: 20191206
  Transmission Date: 20200122
  Serious: Yes (Life-Threatening, Hospitalization)
  Sender: FDA-Public Use
  Company Number: NL-ROCHE-2222487

PATIENT
  Age: 62 Year
  Sex: Male
  Weight: 84.6 kg

DRUGS (9)
  1. PREDNISOLONE. [Concomitant]
     Active Substance: PREDNISOLONE
  2. METOPROLOL SUCCINATE. [Concomitant]
     Active Substance: METOPROLOL SUCCINATE
  3. CELLCEPT [Concomitant]
     Active Substance: MYCOPHENOLATE MOFETIL\MYCOPHENOLATE MOFETIL HYDROCHLORIDE
  4. ATEZOLIZUMAB. [Suspect]
     Active Substance: ATEZOLIZUMAB
     Indication: HORMONE-REFRACTORY PROSTATE CANCER
     Dosage: THE MOST RECENT DOSE (1200 MG) PRIOR TO AE ONSET: 13/SEP/2018
     Route: 042
     Dates: start: 20180913
  5. SIMVASTATINE [Concomitant]
     Active Substance: SIMVASTATIN
  6. CABOZANTINIB [Suspect]
     Active Substance: CABOZANTINIB
     Indication: HORMONE-REFRACTORY PROSTATE CANCER
     Dosage: THE MOST RECENT DOSE PRIOR TO AE ONSET: 24/SEP/2018
     Route: 048
     Dates: start: 20180913
  7. ENALAPRIL [Concomitant]
     Active Substance: ENALAPRIL
  8. COLECALCIFEROL [Concomitant]
     Active Substance: CHOLECALCIFEROL
  9. LERCANIDIPINE [Concomitant]
     Active Substance: LERCANIDIPINE

REACTIONS (3)
  - Immune-mediated hepatitis [Recovered/Resolved]
  - Diverticular perforation [Recovered/Resolved with Sequelae]
  - Diverticulitis [Recovered/Resolved with Sequelae]

NARRATIVE: CASE EVENT DATE: 20180924
